FAERS Safety Report 5084764-2 (Version None)
Quarter: 2006Q3

REPORT INFORMATION
  Report Type: 
  Country: None (occurrence: None)
  Receive Date: 20060815
  Receipt Date: 20060727
  Transmission Date: 20061208
  Serious: Yes (Hospitalization)
  Sender: FDA-Public Use
  Company Number: DE200607005155

PATIENT
  Sex: Female
  Weight: 90 kg

DRUGS (5)
  1. GEMCITABINE HYDROCHLORIDE (GEMCITABINE HYDROCHLORIDE) [Suspect]
     Indication: BREAST CANCER
     Dosage: SEE IMAGE
     Route: 042
     Dates: start: 20060629, end: 20060629
  2. GEMCITABINE HYDROCHLORIDE (GEMCITABINE HYDROCHLORIDE) [Suspect]
     Indication: BREAST CANCER
     Dosage: SEE IMAGE
     Route: 042
     Dates: start: 20060705
  3. DOCETAXEL (DOCETAXEL) [Suspect]
     Indication: BREAST CANCER
     Dosage: 143.25 MG, INTRAVENOUS
     Route: 042
     Dates: start: 20060629
  4. MCP (METOCLOPRAMIDE HYDROCHLORIDE) [Concomitant]
  5. DEXAMETHASONE TAB [Concomitant]

REACTIONS (1)
  - IIIRD NERVE PARESIS [None]
